FAERS Safety Report 21322169 (Version 1)
Quarter: 2022Q3

REPORT INFORMATION
  Report Type: Spontaneous
  Country: DE (occurrence: DE)
  Receive Date: 20220912
  Receipt Date: 20220912
  Transmission Date: 20221027
  Serious: Yes (Hospitalization)
  Sender: FDA-Public Use
  Company Number: None

PATIENT
  Age: 68 Year
  Sex: Female

DRUGS (32)
  1. SPIRONOLACTONE [Suspect]
     Active Substance: SPIRONOLACTONE
     Indication: Hyperuricaemia
     Dosage: UNK UNK, QD
     Route: 065
  2. SPIRONOLACTONE [Suspect]
     Active Substance: SPIRONOLACTONE
     Indication: Oedema
     Dosage: UNK, DOSAGE REPORTED AS 50 MG 25 MG
     Route: 065
     Dates: start: 20030724
  3. HEPARIN [Suspect]
     Active Substance: HEPARIN SODIUM
     Indication: Thrombosis prophylaxis
     Dosage: DOSAGE REPORTED AS INJLSG 5000IE 25000IE
     Route: 065
     Dates: start: 20030721, end: 20030730
  4. CORDAREX [Suspect]
     Active Substance: AMIODARONE
     Indication: Tachycardia
     Dosage: 200 MG (DOSAGE REPORTED AS 200 MG 1-0-0)
     Route: 065
     Dates: start: 20030721, end: 20030721
  5. CORDAREX [Suspect]
     Active Substance: AMIODARONE
     Dosage: 200 MG (FREQUENCY: ONCE)
     Route: 065
     Dates: start: 20030721, end: 20030722
  6. HYDROCHLOROTHIAZIDE\RAMIPRIL [Suspect]
     Active Substance: HYDROCHLOROTHIAZIDE\RAMIPRIL
     Indication: Hypertonia
     Dosage: 2.5 MG, QD (DOSAGE REPORTED AS 2,5 MG 1-0-0)
     Route: 065
     Dates: start: 20030722
  7. POTASSIUM CHLORIDE [Suspect]
     Active Substance: POTASSIUM CHLORIDE
     Indication: Electrolyte substitution therapy
     Dosage: UNK, (DOSAGE REPORTED AS BT 4/3/2 BRSTBL)
     Route: 065
     Dates: start: 20030722, end: 20030724
  8. TORSEMIDE [Suspect]
     Active Substance: TORSEMIDE
     Indication: Oedema
     Dosage: UNK UNK, QD
     Route: 065
     Dates: start: 20030721
  9. TORSEMIDE [Suspect]
     Active Substance: TORSEMIDE
     Dosage: 90 MG, QD
     Route: 065
     Dates: start: 20030721, end: 20030814
  10. PHENPROCOUMON [Suspect]
     Active Substance: PHENPROCOUMON
     Indication: Thrombosis prophylaxis
     Dosage: DOSAGE REPORTED AS N.INR
     Route: 065
     Dates: start: 20030728
  11. DIGITOXIN [Suspect]
     Active Substance: DIGITOXIN
     Indication: Oedema
     Dosage: UNK
     Route: 065
  12. DIGITOXIN [Suspect]
     Active Substance: DIGITOXIN
     Indication: Tachyarrhythmia
     Dosage: 0.1 MG, QD (DOSAGE REPORTED AS 0.1MG 1-0-0 )
     Route: 065
     Dates: start: 20030724
  13. DIGITOXIN [Suspect]
     Active Substance: DIGITOXIN
     Indication: Hypertension
  14. BISOPROLOL FUMARATE [Suspect]
     Active Substance: BISOPROLOL FUMARATE
     Indication: Oedema
     Dosage: TEXT:10 MG; 5MG
     Route: 065
     Dates: start: 20030722, end: 20030727
  15. BISOPROLOL FUMARATE [Suspect]
     Active Substance: BISOPROLOL FUMARATE
     Indication: Hypertension
     Dosage: UNK (DOSAGE REPORTED AS 10MG 5MG)
     Route: 065
     Dates: start: 20030722, end: 20030722
  16. BISOPROLOL FUMARATE [Suspect]
     Active Substance: BISOPROLOL FUMARATE
     Indication: Hypertonia
     Dosage: TEXT:10 MG; 5MG
     Route: 065
     Dates: start: 20030722, end: 20070814
  17. AQUAPHOR [Suspect]
     Active Substance: PETROLATUM
     Indication: Oedema
     Dosage: 40 MG
     Route: 065
     Dates: start: 20030721, end: 20030730
  18. AQUAPHOR [Suspect]
     Active Substance: PETROLATUM
     Dosage: UNK (DOSAGE REPORTED AS 40MG 20MG 10MG)
     Route: 065
  19. AMPICILLIN SODIUM\SULBACTAM SODIUM [Suspect]
     Active Substance: AMPICILLIN SODIUM\SULBACTAM SODIUM
     Indication: Erysipelas
     Dosage: 9 G, QD (DOSAGE REPORTED AS INJLSG 3G 3X3G )
     Route: 065
     Dates: start: 20030721, end: 20030728
  20. AMPICILLIN SODIUM\SULBACTAM SODIUM [Suspect]
     Active Substance: AMPICILLIN SODIUM\SULBACTAM SODIUM
     Dosage: 9 G, QD (DAILY DOSE: 9 G GRAM(S) EVERY DAY)
     Route: 065
     Dates: start: 20030721, end: 20030728
  21. DIGITOXIN [Suspect]
     Active Substance: DIGITOXIN
     Indication: Tachyarrhythmia
     Dosage: 0.25 MG (DOSAGE REPORTED AS INJLSG 0.25MG 1-0-1 1-0-0 )
     Route: 065
     Dates: start: 20030722, end: 20030723
  22. RAMIPRIL [Suspect]
     Active Substance: RAMIPRIL
     Indication: Hypertension
     Dosage: 2.5 MG
     Route: 065
  23. TEMAZEPAM [Suspect]
     Active Substance: TEMAZEPAM
     Indication: Sleep disorder
     Dosage: UNK (DOSE 1 TABLET)
     Route: 065
     Dates: start: 20030724, end: 20030727
  24. TEMAZEPAM [Suspect]
     Active Substance: TEMAZEPAM
     Dosage: 1 DOSAGE FORM, QD (CAPSULE)
     Route: 065
     Dates: start: 20030724
  25. MARCUMAR [Suspect]
     Active Substance: PHENPROCOUMON
     Indication: Thrombosis prophylaxis
     Dosage: UNK, PRN (FREQUENCY: AS NEEDED)
     Route: 065
     Dates: start: 20030728, end: 20030814
  26. ALLOPURINOL [Suspect]
     Active Substance: ALLOPURINOL
     Indication: Hyperuricaemia
     Dosage: 300 MG, QD (DOSAGE REPORTED AS 300MG 0-0-1)
     Route: 065
     Dates: start: 20030722
  27. SILOMAT [Concomitant]
     Indication: Cough
     Dosage: 20 DRP, QD (DROP (1/12 MILLILITRE)
     Route: 065
     Dates: start: 20030722, end: 20030723
  28. SILOMAT [Concomitant]
     Dosage: (DROP (1/12 MILLILITRE) ORAL DROPS
     Route: 065
     Dates: start: 20030722, end: 20030723
  29. BELOC [Concomitant]
     Indication: Hypertension
     Dosage: 10 MG, QD
     Route: 065
     Dates: start: 20030721, end: 20030721
  30. VALERIAN TINCTURE [Concomitant]
     Indication: Agitation
     Dosage: UNK
     Route: 065
     Dates: start: 20030721, end: 20030721
  31. VALERIAN [Concomitant]
     Active Substance: VALERIAN
     Indication: Agitation
     Dosage: UNK (DOSAGE REPORTED AS 1 TEASPOON )
     Route: 065
     Dates: start: 20030721, end: 20030721
  32. FUROSEMIDE [Concomitant]
     Active Substance: FUROSEMIDE
     Indication: Oedema
     Dosage: UNK, (DOSAGE REPORTED AS INJLSG 40MG)
     Route: 065
     Dates: start: 20030721, end: 20030721

REACTIONS (5)
  - Stevens-Johnson syndrome [Recovered/Resolved]
  - Erythema [Recovered/Resolved]
  - Lip erosion [Recovered/Resolved]
  - Blister [Recovered/Resolved]
  - Pruritus [Recovered/Resolved]

NARRATIVE: CASE EVENT DATE: 20030804
